FAERS Safety Report 13061083 (Version 5)
Quarter: 2018Q4

REPORT INFORMATION
  Report Type: Spontaneous
  Country: US (occurrence: US)
  Receive Date: 20161226
  Receipt Date: 20181005
  Transmission Date: 20190204
  Serious: No
  Sender: FDA-Public Use
  Company Number: PHEH2016US033664

PATIENT
  Sex: Female

DRUGS (3)
  1. ZOFRAN [Suspect]
     Active Substance: ONDANSETRON HYDROCHLORIDE
     Indication: MORNING SICKNESS
     Dosage: 2 MG/ML, UNK
     Route: 042
     Dates: start: 20120316
  2. ONDANSETRON HYDROCHLORIDE. [Suspect]
     Active Substance: ONDANSETRON HYDROCHLORIDE
     Indication: MORNING SICKNESS
     Dosage: 04 MG, Q6H
     Route: 048
     Dates: start: 20120316, end: 20120509
  3. ONDANSETRON HYDROCHLORIDE. [Suspect]
     Active Substance: ONDANSETRON HYDROCHLORIDE
     Dosage: 4 MG, Q6H
     Route: 048
     Dates: end: 20121031

REACTIONS (10)
  - Anhedonia [Unknown]
  - Pain [Unknown]
  - Dehydration [Unknown]
  - Dysuria [Unknown]
  - Skin laceration [Unknown]
  - Headache [Unknown]
  - Emotional distress [Unknown]
  - Injury [Unknown]
  - Maternal exposure during pregnancy [Unknown]
  - Product use in unapproved indication [Unknown]
